FAERS Safety Report 7718646-1 (Version None)
Quarter: 2011Q3

REPORT INFORMATION
  Report Type: 
  Country: None (occurrence: None)
  Receive Date: 20110824
  Receipt Date: 20110809
  Transmission Date: 20111222
  Serious: Yes (Hospitalization, Other)
  Sender: FDA-Public Use
  Company Number: 2011SP037445

PATIENT
  Age: 23 Year
  Sex: Male

DRUGS (2)
  1. RIBAVIRIN [Suspect]
     Indication: PRODUCT USED FOR UNKNOWN INDICATION
     Dosage: 200 MG;QD;PO
     Route: 048
     Dates: start: 20100909, end: 20110301
  2. PEGINTRON (PEGINTERFERON ALFA-2B /015403001/) [Suspect]
     Indication: HEPATITIS C
     Dosage: 100 MCG;QW
     Dates: start: 20100909, end: 20110301

REACTIONS (8)
  - RASH ERYTHEMATOUS [None]
  - ALOPECIA [None]
  - LEUKOPENIA [None]
  - EPISTAXIS [None]
  - MUSCLE ABSCESS [None]
  - ANAEMIA [None]
  - THROMBOCYTOPENIA [None]
  - MUCOSAL EROSION [None]
